FAERS Safety Report 4566504-6 (Version None)
Quarter: 2005Q1

REPORT INFORMATION
  Report Type: 
  Country: None (occurrence: None)
  Receive Date: 20050126
  Receipt Date: 20050126
  Transmission Date: 20050727
  Serious: Yes (Other)
  Sender: FDA-Public Use
  Company Number: None

PATIENT
  Age: 25 Year
  Sex: Female
  Weight: 72.5755 kg

DRUGS (3)
  1. MIRCETTE [Suspect]
     Indication: CONTRACEPTION
     Dosage: 1 DAILY
     Dates: start: 20040722
  2. LO/OVRAL [Concomitant]
  3. YASMIN [Concomitant]

REACTIONS (2)
  - DRUG TOLERANCE DECREASED [None]
  - IRRITABILITY [None]
